FAERS Safety Report 10082198 (Version 3)
Quarter: 2014Q2

REPORT INFORMATION
  Report Type: Spontaneous
  Country: AT (occurrence: AT)
  Receive Date: 20140416
  Receipt Date: 20140519
  Transmission Date: 20141212
  Serious: Yes (Hospitalization)
  Sender: FDA-Public Use
  Company Number: PHHY2014AT043434

PATIENT
  Sex: Female

DRUGS (7)
  1. EXFORGE HCT [Suspect]
     Indication: HYPERTENSION
     Dosage: UNK UKN, UNK
  2. PANTOPRAZOLE [Suspect]
     Dosage: UNK UKN, UNK
  3. SIMVASTATIN [Suspect]
     Dosage: UNK UKN, UNK
  4. JENTADUETO [Suspect]
     Dosage: UNK UKN, UNK
  5. THROMBO ASS [Suspect]
     Dosage: UNK UKN, UNK
  6. EBRANTIL [Concomitant]
     Dosage: 30 MG, UNK
  7. EBRANTIL [Concomitant]
     Dosage: 60 MG, UNK

REACTIONS (5)
  - Blood insulin abnormal [Unknown]
  - Feeling abnormal [Unknown]
  - Blood pressure decreased [Unknown]
  - Malaise [Unknown]
  - Blood pressure inadequately controlled [Unknown]
